FAERS Safety Report 5658591-9 (Version None)
Quarter: 2008Q1

REPORT INFORMATION
  Report Type: 
  Country: None (occurrence: None)
  Receive Date: 20080310
  Receipt Date: 20070307
  Transmission Date: 20080703
  Serious: No
  Sender: FDA-Public Use
  Company Number: US-BAYER-200710728BCC

PATIENT
  Age: 63 Year
  Sex: Female

DRUGS (6)
  1. ALEVE [Suspect]
     Indication: PAIN
     Dosage: TOTAL DAILY DOSE: 440 MG  UNIT DOSE: 220 MG
     Route: 048
     Dates: start: 20070307
  2. LOPRESSOR [Concomitant]
  3. CENTRUM [Concomitant]
  4. FISH OIL [Concomitant]
  5. ASCORBIC ACID [Concomitant]
  6. CALCIUM [Concomitant]

REACTIONS (1)
  - PAIN [None]
